FAERS Safety Report 10983821 (Version 3)
Quarter: 2015Q2

REPORT INFORMATION
  Report Type: Report from Study
  Country: KR (occurrence: None)
  Receive Date: 20150401
  Receipt Date: 20150428
  Transmission Date: 20150821
  Serious: Yes (Hospitalization)
  Sender: FDA-Public Use
  Company Number: PIN-2015-00016

PATIENT
  Age: 67 Year
  Sex: Male

DRUGS (34)
  1. PHOTOFRIN [Suspect]
     Active Substance: PORFIMER SODIUM
     Indication: PRODUCT USED FOR UNKNOWN INDICATION
  2. ERTAPENEM [Concomitant]
     Active Substance: ERTAPENEM
  3. EBASTINE [Concomitant]
     Active Substance: EBASTINE
  4. KETOPROFEN. [Concomitant]
     Active Substance: KETOPROFEN
  5. BISACODYL. [Concomitant]
     Active Substance: BISACODYL
  6. BENZYDAMINE HCL (BENZYDAMINE HYDROCHLORIDE) [Concomitant]
  7. URSODEOXYCHOLIC ACID [Concomitant]
     Active Substance: URSODIOL
  8. RAMOSETRON [Concomitant]
     Active Substance: RAMOSETRON HYDROCHLORIDE
  9. LIPID EMULSION (UNKNOWN) (LIPIDS NOS) [Concomitant]
  10. CEFTRIAXONE. [Concomitant]
     Active Substance: CEFTRIAXONE
  11. BROMHEXINE [Concomitant]
     Active Substance: BROMHEXINE
  12. LEVOFLOXACIN. [Concomitant]
     Active Substance: LEVOFLOXACIN
  13. FINASTERIDE. [Concomitant]
     Active Substance: FINASTERIDE
  14. NORZYME (UNKNOWN) (PANCREATIN) [Concomitant]
  15. ACETAMINOPHEN (UNKNOWN) (PARACETAMOL) [Concomitant]
  16. NOREPINEPHRINE [Concomitant]
     Active Substance: NOREPINEPHRINE\NOREPINEPHRINE BITARTRATE
  17. LIVACT (UNKNOWN) (LEUCINE, VALINE, ISOLEUCINE) [Concomitant]
  18. GEMCITABINE [Suspect]
     Active Substance: GEMCITABINE\GEMCITABINE HYDROCHLORIDE
     Indication: BILE DUCT CANCER
     Dosage: 1470 MG (UNKNOWN,QWK X 3, Q21D)
     Route: 042
     Dates: start: 20150303
  19. CISPLATIN. [Suspect]
     Active Substance: CISPLATIN
     Indication: BILE DUCT CANCER
     Dosage: 36.75 MG (UNKNOWN,QWK X 3, Q21D)
     Route: 042
     Dates: start: 20150303
  20. MEGESTEROL ACETATE [Concomitant]
  21. CLINIMIX N9G15E (UNKNOWN) GLUCOSE, GLYCINE, ALANINE, SERINE, TYROSINE, LEUCINE, METHIONINE, PHENYLALANINE, VALINE, THREONINE, TRYPTOPHAN, L-, ISOLEUCINE, SODIUM ACETATE, PROLINE, LYSINE HYDROCHLORIDE, ARGININE HYDROCHLORIDE, HISTIDINE HYDROCHLORIDE, SODIUM CHLORIDE, POTASSIUM PHOSPHATE DIBASIC, MAGNESIUM CHLORIDE, CALCIUM CHLORIDE DIHYDRATE) [Concomitant]
  22. DEXTROSE IN WATER (5 PERCENT, UNKNOWN) (GLUCOSE) [Concomitant]
  23. PANCREATIN [Concomitant]
     Active Substance: PANCRELIPASE
  24. METRONIDAZOLE. [Concomitant]
     Active Substance: METRONIDAZOLE
  25. NORMAL SALINE [Concomitant]
     Active Substance: SODIUM CHLORIDE
  26. TAMULOSIN (UNKNOWN) (TAMSULOSIN HYDROCHLORIDE) [Concomitant]
  27. HEPA-MERZ (UNKNOWN) (ORNITHINE ASPARTATE) [Concomitant]
  28. VIREAD (UNKNOWN) (TENOFOVIR DISOPROXIL FUMARATE) [Concomitant]
  29. TAMSULOSIN [Concomitant]
     Active Substance: TAMSULOSIN
  30. FENTANYL CITRATE. [Concomitant]
     Active Substance: FENTANYL CITRATE
  31. METOCLOPRAMIDE. [Concomitant]
     Active Substance: METOCLOPRAMIDE
  32. SODIUM BICARBONATE. [Concomitant]
     Active Substance: SODIUM BICARBONATE
  33. TAMIPOOL (UNKNOWN) (VITAMINS NOS) [Concomitant]
  34. GODEX (UNKNOWN) (PYRIDOXINE HYDROCHLORIDE, CYANOCOBALAMIN, RIBOFLAVIN, ADENINE HYDROCHLORIDE, LIVER EXTRACT, CARNITINE OROTATE) [Concomitant]

REACTIONS (6)
  - White blood cell count decreased [None]
  - Sepsis [None]
  - Biliary sepsis [None]
  - Shock [None]
  - Bacterial infection [None]
  - Platelet count decreased [None]

NARRATIVE: CASE EVENT DATE: 20150316
